FAERS Safety Report 16570325 (Version 1)
Quarter: 2019Q3

REPORT INFORMATION
  Report Type: Spontaneous
  Country: US (occurrence: US)
  Receive Date: 20190531
  Receipt Date: 20190531
  Transmission Date: 20191004
  Serious: No
  Sender: FDA-Public Use
  Company Number: None

PATIENT
  Age: 22 Day
  Sex: Female

DRUGS (2)
  1. PHYTONADIONE 1MG [Suspect]
     Active Substance: PHYTONADIONE
     Route: 030
     Dates: start: 20190228
  2. ERYTHROMYCIN 1APP BOTH EYES [Suspect]
     Active Substance: ERYTHROMYCIN
     Dates: start: 20190228

REACTIONS (1)
  - Jaundice neonatal [None]

NARRATIVE: CASE EVENT DATE: 20190302
